FAERS Safety Report 14722212 (Version 3)
Quarter: 2018Q3

REPORT INFORMATION
  Report Type: Spontaneous
  Country: IT (occurrence: IT)
  Receive Date: 20180405
  Receipt Date: 20180702
  Transmission Date: 20181010
  Serious: Yes (Life-Threatening)
  Sender: FDA-Public Use
  Company Number: IT-TEVA-2018-IT-876285

PATIENT
  Age: 73 Year
  Sex: Male
  Weight: 107 kg

DRUGS (5)
  1. AMILORIDE HYDROCHLORIDE. [Concomitant]
     Active Substance: AMILORIDE HYDROCHLORIDE
     Route: 048
  2. LITHIUM. [Suspect]
     Active Substance: LITHIUM
     Indication: BIPOLAR II DISORDER
     Route: 048
     Dates: start: 20161101, end: 20171129
  3. OLANZAPINE. [Concomitant]
     Active Substance: OLANZAPINE
     Route: 048
  4. HYDROCHLOROTHIAZIDE. [Concomitant]
     Active Substance: HYDROCHLOROTHIAZIDE
     Route: 048
  5. PRAZEPAM [Concomitant]
     Active Substance: PRAZEPAM
     Route: 048

REACTIONS (5)
  - Agitation [Recovered/Resolved]
  - Disorientation [Recovered/Resolved]
  - Dysarthria [Recovered/Resolved]
  - Bradyarrhythmia [Recovered/Resolved]
  - Presyncope [Recovered/Resolved]

NARRATIVE: CASE EVENT DATE: 20171129
